FAERS Safety Report 9205792 (Version 1)
Quarter: 2013Q2

REPORT INFORMATION
  Report Type: Spontaneous
  Country: US (occurrence: None)
  Receive Date: 20130401
  Receipt Date: 20130401
  Transmission Date: 20140414
  Serious: Yes (Other)
  Sender: FDA-Public Use
  Company Number: 20130124

PATIENT
  Sex: 0

DRUGS (2)
  1. ATROPINE SULFATE INJECTION [Suspect]
     Dates: start: 20130305, end: 20130305
  2. SODIUM CHLORIDE [Concomitant]

REACTIONS (5)
  - Paraesthesia oral [None]
  - Eye swelling [None]
  - Pharyngeal oedema [None]
  - Dyspnoea [None]
  - Product quality issue [None]
